FAERS Safety Report 9743311 (Version 2)
Quarter: 2013Q4

REPORT INFORMATION
  Report Type: Spontaneous
  Country: US (occurrence: US)
  Receive Date: 20131210
  Receipt Date: 20131210
  Transmission Date: 20140711
  Serious: No
  Sender: FDA-Public Use
  Company Number: US-GILEAD-2009-0025480

PATIENT
  Age: 49 Year
  Sex: Male
  Weight: 93.44 kg

DRUGS (11)
  1. LETAIRIS [Suspect]
     Indication: PULMONARY ARTERIAL HYPERTENSION
     Route: 048
     Dates: start: 20091103
  2. WARFARIN [Concomitant]
     Route: 048
  3. HYDRALAZINE [Concomitant]
  4. LISINOPRIL [Concomitant]
  5. AMIODARONE HCL [Concomitant]
  6. AMLODIPINE BESYLATE [Concomitant]
  7. DIGOXIN [Concomitant]
  8. RENAGEL [Concomitant]
  9. SENSIPAR [Concomitant]
  10. ALLOPURINOL [Concomitant]
  11. NEXIUM [Concomitant]

REACTIONS (2)
  - Ocular hyperaemia [Unknown]
  - Mouth haemorrhage [Unknown]
